APPROVED DRUG PRODUCT: CHLORZOXAZONE
Active Ingredient: CHLORZOXAZONE
Strength: 500MG
Dosage Form/Route: TABLET;ORAL
Application: A081019 | Product #001
Applicant: WATSON LABORATORIES INC
Approved: Jul 29, 1991 | RLD: No | RS: No | Type: DISCN